FAERS Safety Report 19390231 (Version 1)
Quarter: 2021Q2

REPORT INFORMATION
  Report Type: Spontaneous
  Country: US (occurrence: US)
  Receive Date: 20210608
  Receipt Date: 20210608
  Transmission Date: 20210717
  Serious: Yes (Hospitalization, Other)
  Sender: FDA-Public Use
  Company Number: US-AMNEAL PHARMACEUTICALS-2021-AMRX-02101

PATIENT
  Age: 36 Year
  Sex: Female

DRUGS (3)
  1. DEXMEDETOMIDINE HYDROCHLORIDE. [Concomitant]
     Active Substance: DEXMEDETOMIDINE HYDROCHLORIDE
     Indication: SEDATION
     Dosage: UNK
     Route: 065
  2. DIPHENHYDRAMINE [DIPHENHYDRAMINE HYDROCHLORIDE] [Concomitant]
     Active Substance: DIPHENHYDRAMINE HYDROCHLORIDE
     Indication: SEDATION
     Route: 065
  3. DIGOXIN. [Suspect]
     Active Substance: DIGOXIN
     Indication: PRODUCT USED FOR UNKNOWN INDICATION
     Dosage: 450 MICROGRAM
     Route: 037

REACTIONS (9)
  - Cerebral infarction [Recovered/Resolved with Sequelae]
  - Cerebrovascular accident [Recovered/Resolved with Sequelae]
  - Maternal exposure during delivery [Unknown]
  - Hypokalaemia [Unknown]
  - Respiratory failure [Recovered/Resolved]
  - Incorrect route of product administration [Unknown]
  - Encephalopathy [Recovered/Resolved with Sequelae]
  - Seizure [Recovered/Resolved]
  - Electrocardiogram QT prolonged [Unknown]
